FAERS Safety Report 14929676 (Version 4)
Quarter: 2022Q1

REPORT INFORMATION
  Report Type: Spontaneous
  Country: NL (occurrence: NL)
  Receive Date: 20180523
  Receipt Date: 20220120
  Transmission Date: 20220423
  Serious: Yes (Hospitalization)
  Sender: FDA-Public Use
  Company Number: NL-ROCHE-2104415

PATIENT

DRUGS (5)
  1. IRINOTECAN HYDROCHLORIDE [Suspect]
     Active Substance: IRINOTECAN HYDROCHLORIDE
     Indication: Colorectal cancer
     Dosage: 165 MG/M2, THE DATE OF LAST DOSE WAS 07JUN2016 PRIOR TO AE
     Route: 042
     Dates: start: 20160607, end: 20160607
  2. OXALIPLATIN [Suspect]
     Active Substance: OXALIPLATIN
     Indication: Colorectal cancer
     Dosage: 85 MG/M2, THE DATE OF LAST DOSE WAS 07JUN2016 PRIOR TO AE
     Route: 042
     Dates: start: 20160607, end: 20160607
  3. FLUOROURACIL [Suspect]
     Active Substance: FLUOROURACIL
     Indication: Colorectal cancer
     Dosage: 3200 MG/M2, THE DATE OF LAST DOSE WAS 08JUN2016 PRIOR TO AE
     Route: 042
     Dates: start: 20160607, end: 20160608
  4. BEVACIZUMAB [Suspect]
     Active Substance: BEVACIZUMAB
     Indication: Colorectal cancer
     Dosage: 5 MG/KG, THE DATE OF LAST DOSE WAS 07JUN2016 PRIOR TO AE
     Route: 042
     Dates: start: 20160607, end: 20160607
  5. LEUCOVORIN [Suspect]
     Active Substance: LEUCOVORIN
     Indication: Colorectal cancer
     Dosage: 400 MG/M2, THE DATE OF LAST DOSE WAS 07JUN2016 PRIOR TO AE
     Route: 042
     Dates: start: 20160607, end: 20160607

REACTIONS (3)
  - Pyrexia [Recovered/Resolved]
  - Tumour lysis syndrome [Recovered/Resolved]
  - Diarrhoea [Recovered/Resolved]

NARRATIVE: CASE EVENT DATE: 20160611
